FAERS Safety Report 5135238-1 (Version None)
Quarter: 2006Q4

REPORT INFORMATION
  Report Type: 
  Country: None (occurrence: None)
  Receive Date: 20061024
  Receipt Date: 20061024
  Transmission Date: 20070319
  Serious: Yes (Other)
  Sender: FDA-Public Use
  Company Number: None

PATIENT
  Sex: Male

DRUGS (15)
  1. DULOXETINE 60 MG [Suspect]
     Indication: DEPRESSION
     Dosage: 60 MG DAILY PO
     Route: 048
     Dates: start: 20060824, end: 20060906
  2. DULOXETINE 60 MG [Suspect]
     Indication: PAIN
     Dosage: 60 MG DAILY PO
     Route: 048
     Dates: start: 20060824, end: 20060906
  3. DOCUSATE [Concomitant]
  4. FERROUS SULFATE TAB [Concomitant]
  5. FINASTERIDE [Concomitant]
  6. FLUNISOLIDE NASAL [Concomitant]
  7. FUROSEMIDE [Concomitant]
  8. NPH INSULIN [Concomitant]
  9. LANSOPRAZOLE [Concomitant]
  10. METOPROLOL TARTRATE [Concomitant]
  11. OXYCODONE AND ACETAMINOPHEN [Concomitant]
  12. POTASSIUM CHLORIDE [Concomitant]
  13. SENNA [Concomitant]
  14. TERAZOSIN HCL [Concomitant]
  15. ASPIRIN [Concomitant]

REACTIONS (3)
  - DRUG EFFECT DECREASED [None]
  - FALL [None]
  - FATIGUE [None]
